FAERS Safety Report 9847189 (Version 4)
Quarter: 2014Q1

REPORT INFORMATION
  Report Type: Report from Study
  Country: JP (occurrence: JP)
  Receive Date: 20140127
  Receipt Date: 20140315
  Transmission Date: 20141002
  Serious: Yes (Hospitalization)
  Sender: FDA-Public Use
  Company Number: JP-ASTRAZENECA-2014SE05558

PATIENT
  Age: 15592 Day
  Sex: Male
  Weight: 82.2 kg

DRUGS (8)
  1. FK949E [Suspect]
     Indication: BIPOLAR DISORDER
     Dosage: RUN IN
     Route: 048
     Dates: start: 20130528
  2. FK949E [Suspect]
     Indication: MAJOR DEPRESSION
     Dosage: RUN IN
     Route: 048
     Dates: start: 20130528
  3. FK949E [Suspect]
     Indication: BIPOLAR DISORDER
     Dosage: BLINDED
     Route: 048
     Dates: start: 20130611, end: 20130805
  4. FK949E [Suspect]
     Indication: MAJOR DEPRESSION
     Dosage: BLINDED
     Route: 048
     Dates: start: 20130611, end: 20130805
  5. FK949E [Suspect]
     Indication: BIPOLAR DISORDER
     Route: 048
     Dates: start: 20130806, end: 20140118
  6. FK949E [Suspect]
     Indication: MAJOR DEPRESSION
     Route: 048
     Dates: start: 20130806, end: 20140118
  7. LORAZEPAM [Concomitant]
     Dates: start: 20130514, end: 20140115
  8. TRIAZOLAM [Concomitant]
     Dates: start: 20130514, end: 20140115

REACTIONS (1)
  - Mania [Recovered/Resolved]
